FAERS Safety Report 18756641 (Version 13)
Quarter: 2023Q1

REPORT INFORMATION
  Report Type: Report from Study
  Country: JP (occurrence: None)
  Receive Date: 20210119
  Receipt Date: 20230314
  Transmission Date: 20230418
  Serious: Yes (Hospitalization)
  Sender: FDA-Public Use
  Company Number: JP-ROCHE-2746970

PATIENT
  Age: 66 Year
  Sex: Male
  Weight: 56.5 kg

DRUGS (23)
  1. TIRAGOLUMAB [Suspect]
     Active Substance: TIRAGOLUMAB
     Indication: Oesophageal squamous cell carcinoma
     Dosage: ON THE SAME DAY, HE RECEIVED THE MOST RECENT DOSE (600 MG) OF TIRAGOLUMAB.
     Route: 042
     Dates: start: 20201218
  2. ATEZOLIZUMAB [Suspect]
     Active Substance: ATEZOLIZUMAB
     Indication: Oesophageal squamous cell carcinoma
     Dosage: ON THE SAME DAY, HE RECEIVED MOST RECENT DOSE (1200 MG) OF ATEZOLIZUMAB.
     Route: 041
     Dates: start: 20201218
  3. DIPHENHYDRAMINE [Concomitant]
     Active Substance: DIPHENHYDRAMINE
     Indication: Senile pruritus
     Dates: start: 20201108
  4. GLYCOSAMINOGLYCANS [Concomitant]
     Active Substance: GLYCOSAMINOGLYCANS
     Indication: Senile pruritus
     Dates: start: 20200925
  5. LANSOPRAZOLE [Concomitant]
     Active Substance: LANSOPRAZOLE
     Indication: Gastrooesophageal reflux disease
     Dates: start: 20201020
  6. SODIUM CHLORIDE [Concomitant]
     Active Substance: SODIUM CHLORIDE
     Indication: Feeding tube user
     Dates: start: 20200917
  7. BETAMETHASONE BUTYRATE PROPIONATE [Concomitant]
     Active Substance: BETAMETHASONE BUTYRATE PROPIONATE
     Indication: Senile pruritus
     Route: 062
     Dates: start: 2019
  8. RINDERON VG [Concomitant]
     Active Substance: BETAMETHASONE VALERATE\GENTAMICIN SULFATE
     Indication: Senile pruritus
     Route: 062
     Dates: start: 20201108
  9. HEPARINOID [Concomitant]
     Indication: Senile pruritus
     Dosage: OIL BASED CREAM
     Dates: start: 2019
  10. CALONAL [Concomitant]
     Active Substance: ACETAMINOPHEN
     Indication: Pyrexia
     Dates: start: 20201220, end: 20210108
  11. OMEPRAZOLE [Concomitant]
     Active Substance: OMEPRAZOLE
     Indication: Gastrooesophageal reflux disease
     Dates: start: 20210108, end: 20210118
  12. FAMOTIDINE [Concomitant]
     Active Substance: FAMOTIDINE
     Indication: Premedication
     Dates: start: 20210129, end: 20210129
  13. FAMOTIDINE [Concomitant]
     Active Substance: FAMOTIDINE
     Dates: start: 20210219, end: 20210219
  14. POLARAMINE [Concomitant]
     Active Substance: DEXCHLORPHENIRAMINE MALEATE
     Indication: Premedication
     Dates: start: 20210129, end: 20210129
  15. POLARAMINE [Concomitant]
     Active Substance: DEXCHLORPHENIRAMINE MALEATE
     Dates: start: 20210219, end: 20210219
  16. ACETAMINOPHEN [Concomitant]
     Active Substance: ACETAMINOPHEN
     Indication: Premedication
     Dosage: BAG
     Route: 042
     Dates: start: 20210129, end: 20210129
  17. ACETAMINOPHEN [Concomitant]
     Active Substance: ACETAMINOPHEN
     Indication: Pyrexia
     Dosage: BAG
     Route: 042
     Dates: start: 20210219, end: 20210219
  18. ACETAMINOPHEN [Concomitant]
     Active Substance: ACETAMINOPHEN
     Dosage: BAG
     Route: 042
     Dates: start: 20210108, end: 20210111
  19. GATIFLOXACIN [Concomitant]
     Active Substance: GATIFLOXACIN
     Indication: Herpes zoster
     Route: 047
     Dates: start: 20210226
  20. FLUOROMETHOLONE [Concomitant]
     Active Substance: FLUOROMETHOLONE
     Indication: Herpes zoster
     Dosage: DOSE FORM: LIQUID
     Route: 047
     Dates: start: 20210226
  21. BROMFENAC SODIUM [Concomitant]
     Active Substance: BROMFENAC SODIUM
     Indication: Herpes zoster
     Route: 047
     Dates: start: 20210226
  22. ACYCLOVIR [Concomitant]
     Active Substance: ACYCLOVIR
     Indication: Herpes zoster
     Dates: start: 20210226
  23. PACLITAXEL [Concomitant]
     Active Substance: PACLITAXEL
     Dates: start: 20210318, end: 20210402

REACTIONS (2)
  - Oesophageal rupture [Recovered/Resolved]
  - Radiation pneumonitis [Not Recovered/Not Resolved]

NARRATIVE: CASE EVENT DATE: 20210108
